FAERS Safety Report 5385204-6 (Version None)
Quarter: 2007Q3

REPORT INFORMATION
  Report Type: 
  Country: None (occurrence: None)
  Receive Date: 20070706
  Receipt Date: 20070706
  Transmission Date: 20080115
  Serious: Yes (Other)
  Sender: FDA-Public Use
  Company Number: None

PATIENT
  Sex: Female
  Weight: 72.5755 kg

DRUGS (1)
  1. AMITIZA [Suspect]
     Indication: DYSPEPSIA
     Dosage: 1 CAPSULE 2 TIMES PER DAY PO
     Route: 048
     Dates: start: 20070416, end: 20070417

REACTIONS (4)
  - ABDOMINAL DISTENSION [None]
  - DIARRHOEA [None]
  - FLATULENCE [None]
  - NAUSEA [None]
